FAERS Safety Report 5454661-9 (Version None)
Quarter: 2007Q3

REPORT INFORMATION
  Report Type: 
  Country: None (occurrence: None)
  Receive Date: 20070917
  Receipt Date: 20060912
  Transmission Date: 20080115
  Serious: No
  Sender: FDA-Public Use
  Company Number: US-ASTRAZENECA-2006UW16378

PATIENT
  Age: 56 Year
  Sex: Male
  Weight: 68.9 kg

DRUGS (4)
  1. SEROQUEL [Suspect]
     Indication: MANIA
     Route: 048
  2. SEROQUEL [Suspect]
     Indication: SCHIZOPHRENIA
     Route: 048
  3. SEROQUEL [Suspect]
     Indication: GENERALISED ANXIETY DISORDER
     Route: 048
  4. DEPAKOTE [Concomitant]

REACTIONS (5)
  - BODY HEIGHT DECREASED [None]
  - FALL [None]
  - INSOMNIA [None]
  - SOMNOLENCE [None]
  - VISUAL FIELD DEFECT [None]
